FAERS Safety Report 17275550 (Version 1)
Quarter: 2020Q1

REPORT INFORMATION
  Report Type: Spontaneous
  Country: US (occurrence: US)
  Receive Date: 20200116
  Receipt Date: 20200116
  Transmission Date: 20200409
  Serious: Yes (Hospitalization, Other)
  Sender: FDA-Public Use
  Company Number: US-ASTRAZENECA-2020SE04356

PATIENT
  Age: 71 Year
  Sex: Male

DRUGS (4)
  1. OMEPRAZOLE. [Suspect]
     Active Substance: OMEPRAZOLE
     Indication: RENAL CELL CARCINOMA
     Dosage: 40.0MG UNKNOWN
     Route: 048
  2. OMEPRAZOLE. [Suspect]
     Active Substance: OMEPRAZOLE
     Indication: RENAL CELL CARCINOMA
     Dosage: 20.0MG UNKNOWN
     Route: 048
  3. OMEPRAZOLE. [Suspect]
     Active Substance: OMEPRAZOLE
     Indication: PANCREATIC CYST
     Dosage: 20.0MG UNKNOWN
     Route: 048
  4. OMEPRAZOLE. [Suspect]
     Active Substance: OMEPRAZOLE
     Indication: PANCREATIC CYST
     Dosage: 40.0MG UNKNOWN
     Route: 048

REACTIONS (8)
  - Chest discomfort [Unknown]
  - Weight decreased [Unknown]
  - Hepatic enzyme increased [Unknown]
  - Lung neoplasm [Unknown]
  - Chest pain [Unknown]
  - Pancreatic neoplasm [Unknown]
  - Hiccups [Unknown]
  - Anxiety [Unknown]
